FAERS Safety Report 17158794 (Version 3)
Quarter: 2020Q1

REPORT INFORMATION
  Report Type: Report from Study
  Country: DE (occurrence: DE)
  Receive Date: 20191216
  Receipt Date: 20200110
  Transmission Date: 20200409
  Serious: Yes (Life-Threatening, Hospitalization)
  Sender: FDA-Public Use
  Company Number: NVSC2019DE069757

PATIENT
  Sex: Female
  Weight: 93 kg

DRUGS (4)
  1. KISQALI [Suspect]
     Active Substance: RIBOCICLIB
     Indication: BREAST CANCER METASTATIC
     Dosage: 600 MG (SCHEMA 21 DAYS INTAKE THAN7 DAYS PAUSE)
     Route: 048
     Dates: start: 20190812, end: 20191018
  2. KISQALI [Suspect]
     Active Substance: RIBOCICLIB
     Dosage: 400 MG (SCHEMA 21 DAYS INTAKE THAN7 DAYS PAUSE)
     Route: 048
     Dates: start: 20191019, end: 20191104
  3. FULVESTRANT. [Suspect]
     Active Substance: FULVESTRANT
     Indication: BREAST CANCER METASTATIC
     Dosage: 250 MG, Q4W
     Route: 030
     Dates: start: 20190805
  4. TORASEMIDE [Concomitant]
     Active Substance: TORSEMIDE
     Indication: POLYURIA
     Dosage: 20 MG (TWICE IN THE MORNING)
     Route: 048

REACTIONS (1)
  - Blood creatinine increased [Recovered/Resolved]

NARRATIVE: CASE EVENT DATE: 20191112
